FAERS Safety Report 24997466 (Version 2)
Quarter: 2025Q1

REPORT INFORMATION
  Report Type: Spontaneous
  Country: JP (occurrence: JP)
  Receive Date: 20250222
  Receipt Date: 20250327
  Transmission Date: 20250408
  Serious: Yes (Hospitalization)
  Sender: AMGEN
  Company Number: JP-BEH-2025196762

PATIENT
  Age: 81 Year
  Sex: Female

DRUGS (2)
  1. TAVNEOS [Suspect]
     Active Substance: AVACOPAN
     Indication: Product used for unknown indication
     Dosage: 60 MG, QD
     Route: 048
  2. TAVNEOS [Suspect]
     Active Substance: AVACOPAN
     Route: 048

REACTIONS (1)
  - Bone cyst [Unknown]
